FAERS Safety Report 9805754 (Version 1)
Quarter: 2014Q1

REPORT INFORMATION
  Report Type: Spontaneous
  Country: US (occurrence: US)
  Receive Date: 20140109
  Receipt Date: 20140109
  Transmission Date: 20141002
  Serious: Yes (Death, Other)
  Sender: FDA-Public Use
  Company Number: US-PFIZER INC-2014005358

PATIENT
  Age: 39 Year
  Sex: Female

DRUGS (4)
  1. OXYCODONE HYDROCHLORIDE [Suspect]
  2. MELOXICAM [Suspect]
  3. TRAMADOL [Suspect]
  4. DIAZEPAM [Suspect]

REACTIONS (4)
  - Intentional drug misuse [Fatal]
  - Completed suicide [Fatal]
  - Cardiac arrest [Fatal]
  - Respiratory arrest [Fatal]
